FAERS Safety Report 5319089-0 (Version None)
Quarter: 2007Q2

REPORT INFORMATION
  Report Type: 
  Country: None (occurrence: None)
  Receive Date: 20070508
  Receipt Date: 20070502
  Transmission Date: 20071010
  Serious: Yes (Hospitalization)
  Sender: FDA-Public Use
  Company Number: ZAWYE569402MAY07

PATIENT
  Age: 46 Year
  Sex: Male

DRUGS (2)
  1. EFFEXOR XR [Suspect]
     Indication: MAJOR DEPRESSION
     Dosage: 300MG DAILY
     Route: 048
  2. RISPERDAL [Suspect]

REACTIONS (3)
  - ANXIETY [None]
  - DRY MOUTH [None]
  - SALIVARY GLAND CALCULUS [None]
